FAERS Safety Report 11754001 (Version 1)
Quarter: 2015Q4

REPORT INFORMATION
  Report Type: Spontaneous
  Country: ES (occurrence: ES)
  Receive Date: 20151119
  Receipt Date: 20151119
  Transmission Date: 20160304
  Serious: Yes (Other)
  Sender: FDA-Public Use
  Company Number: ES-JNJFOC-20151116958

PATIENT
  Age: 72 Year
  Sex: Male

DRUGS (1)
  1. CAELYX [Suspect]
     Active Substance: DOXORUBICIN HYDROCHLORIDE
     Indication: HEPATIC LESION
     Route: 065

REACTIONS (4)
  - Ulcer [Unknown]
  - Product use issue [Unknown]
  - Incorrect route of drug administration [Unknown]
  - Off label use [Unknown]
